FAERS Safety Report 15000701 (Version 2)
Quarter: 2019Q1

REPORT INFORMATION
  Report Type: Report from Study
  Country: ES (occurrence: ES)
  Receive Date: 20180612
  Receipt Date: 20190102
  Transmission Date: 20190417
  Serious: Yes (Hospitalization)
  Sender: FDA-Public Use
  Company Number: ES-MYLANLABS-2018M1035049

PATIENT
  Age: 55 Year
  Sex: Female

DRUGS (2)
  1. IVABRADINA [Interacting]
     Active Substance: IVABRADINE
     Indication: MYOCARDIAL ISCHAEMIA
     Dosage: UNK
     Route: 048
     Dates: start: 2013, end: 20131021
  2. BISOPROLOL [Suspect]
     Active Substance: BISOPROLOL
     Indication: MYOCARDIAL ISCHAEMIA
     Dosage: UNK
     Route: 048
     Dates: start: 2013, end: 20131021

REACTIONS (6)
  - Chest pain [Recovered/Resolved]
  - Off label use [Unknown]
  - Drug interaction [Unknown]
  - Dizziness [Recovered/Resolved]
  - Sinus bradycardia [Recovered/Resolved]
  - Asthenia [Recovered/Resolved]

NARRATIVE: CASE EVENT DATE: 20131021
